FAERS Safety Report 7959751-4 (Version None)
Quarter: 2011Q4

REPORT INFORMATION
  Report Type: 
  Country: None (occurrence: None)
  Receive Date: 20111206
  Receipt Date: 20111128
  Transmission Date: 20120403
  Serious: Yes (Hospitalization)
  Sender: FDA-Public Use
  Company Number: JP-GLAXOSMITHKLINE-B0763437A

PATIENT
  Sex: Female

DRUGS (12)
  1. URSO 250 [Concomitant]
     Dosage: 150MG PER DAY
     Route: 048
     Dates: start: 20111109
  2. LAMICTAL [Suspect]
     Indication: BIPOLAR II DISORDER
     Route: 048
     Dates: start: 20111017, end: 20111109
  3. CARNACULIN [Concomitant]
     Dosage: 150MG PER DAY
     Route: 048
     Dates: start: 20111109
  4. ASPIRIN [Concomitant]
     Dosage: 100MG PER DAY
     Route: 048
     Dates: start: 20111109
  5. LENDORMIN [Concomitant]
     Route: 048
  6. ROHYPNOL [Concomitant]
     Indication: INSOMNIA
     Dosage: 1MG PER DAY
     Route: 048
     Dates: start: 20111109
  7. DEPAKENE [Concomitant]
     Indication: BIPOLAR II DISORDER
     Dosage: 1200MG PER DAY
     Route: 048
     Dates: start: 20110419
  8. LENDORMIN [Concomitant]
     Route: 048
  9. ESTAZOLAM [Concomitant]
     Indication: INSOMNIA
     Dosage: 4MG PER DAY
     Route: 048
     Dates: start: 20111109
  10. ESTAZOLAM [Concomitant]
     Route: 048
  11. ROHYPNOL [Concomitant]
     Route: 048
  12. LOSARTAN POTASSIUM [Concomitant]
     Dosage: 50MG PER DAY
     Route: 048
     Dates: start: 20111109

REACTIONS (7)
  - DIZZINESS [None]
  - PERFORMANCE STATUS DECREASED [None]
  - DISORIENTATION [None]
  - ACCIDENTAL OVERDOSE [None]
  - ALTERED STATE OF CONSCIOUSNESS [None]
  - COGNITIVE DISORDER [None]
  - DEPRESSED LEVEL OF CONSCIOUSNESS [None]
